FAERS Safety Report 6023582-5 (Version None)
Quarter: 2008Q4

REPORT INFORMATION
  Report Type: 
  Country: None (occurrence: None)
  Receive Date: 20081222
  Receipt Date: 20080924
  Transmission Date: 20090506
  Serious: No
  Sender: FDA-Public Use
  Company Number: SPV1-2008-02063

PATIENT
  Age: 30 Year
  Sex: Female
  Weight: 66.2 kg

DRUGS (5)
  1. VYVANSE [Suspect]
     Indication: CHRONIC FATIGUE SYNDROME
     Dosage: 70 MG, 1X/DAY:QD, ORAL
     Route: 048
     Dates: start: 20080908, end: 20080923
  2. LAMICTAL [Concomitant]
  3. ZOLOFT [Concomitant]
  4. ALLEGRA D (FEXOFENADINE HYDROCHLORIDE, PSEUDOEPHEDRINE HYDROCHLORIDE) [Concomitant]
  5. TEMAZEPAM [Concomitant]

REACTIONS (5)
  - DISTURBANCE IN ATTENTION [None]
  - DIZZINESS [None]
  - HEADACHE [None]
  - IRRITABILITY [None]
  - OFF LABEL USE [None]
